FAERS Safety Report 4896606-6 (Version None)
Quarter: 2006Q1

REPORT INFORMATION
  Report Type: 
  Country: None (occurrence: None)
  Receive Date: 20060131
  Receipt Date: 20060116
  Transmission Date: 20060701
  Serious: Yes (Other)
  Sender: FDA-Public Use
  Company Number: ES-AMGEN-UK164331

PATIENT
  Sex: Female
  Weight: 57.5 kg

DRUGS (6)
  1. MIMPARA [Suspect]
     Indication: HYPERPARATHYROIDISM SECONDARY
     Route: 048
     Dates: start: 20051005, end: 20051213
  2. ALLOPURINOL [Concomitant]
     Route: 048
     Dates: start: 20010122
  3. ENALAPRIL [Concomitant]
     Route: 048
     Dates: start: 20050204
  4. ISONIAZID [Concomitant]
     Route: 048
     Dates: start: 20050812
  5. SEVELAMER HCL [Concomitant]
     Route: 048
     Dates: start: 20050905
  6. SODIUM BICARBONATE [Concomitant]
     Route: 048
     Dates: start: 20050905

REACTIONS (3)
  - ALANINE AMINOTRANSFERASE INCREASED [None]
  - ASPARTATE AMINOTRANSFERASE INCREASED [None]
  - GAMMA-GLUTAMYLTRANSFERASE INCREASED [None]
